FAERS Safety Report 21363451 (Version 1)
Quarter: 2022Q3

REPORT INFORMATION
  Report Type: Report from Study
  Country: US (occurrence: US)
  Receive Date: 20220922
  Receipt Date: 20220922
  Transmission Date: 20221027
  Serious: Yes (Other)
  Sender: FDA-Public Use
  Company Number: None

PATIENT
  Age: 73 Year
  Sex: Male

DRUGS (2)
  1. VENCLEXTA [Suspect]
     Active Substance: VENETOCLAX
     Indication: Deep vein thrombosis
     Route: 048
     Dates: start: 202111
  2. COVID-19 VACCINE NOS [Suspect]
     Active Substance: COVID-19 VACCINE NOS
     Indication: COVID-19 immunisation
     Dosage: 1 IN ONCE
     Route: 030

REACTIONS (13)
  - Monoplegia [Unknown]
  - Micturition disorder [Unknown]
  - Renal disorder [Unknown]
  - Memory impairment [Unknown]
  - Gait disturbance [Unknown]
  - Constipation [Not Recovered/Not Resolved]
  - Peripheral swelling [Unknown]
  - Muscular weakness [Unknown]
  - Unevaluable event [Unknown]
  - Thrombosis [Unknown]
  - Fatigue [Unknown]
  - Somnolence [Unknown]
  - Wheelchair user [Unknown]

NARRATIVE: CASE EVENT DATE: 20220101
